FAERS Safety Report 7441789-7 (Version None)
Quarter: 2011Q2

REPORT INFORMATION
  Report Type: 
  Country: None (occurrence: None)
  Receive Date: 20110419
  Receipt Date: 20110413
  Transmission Date: 20111010
  Serious: Yes (Death)
  Sender: FDA-Public Use
  Company Number: WAES 1101DEU00025

PATIENT
  Age: 65 Year
  Sex: Male

DRUGS (4)
  1. ITRACONAZOLE [Concomitant]
  2. AMPHOTERICIN B [Concomitant]
  3. CASPOFUNGIN ACETATE [Suspect]
     Indication: ASPERGILLOSIS
     Dosage: 50 MG/DAILY/IV, 70 MG/DAILY/IV
     Route: 042
  4. POSACONAZOLE [Suspect]
     Dosage: 200 MG/QID/PO
     Route: 048

REACTIONS (5)
  - GRAFT VERSUS HOST DISEASE [None]
  - SEPSIS [None]
  - NO THERAPEUTIC RESPONSE [None]
  - DRUG INEFFECTIVE [None]
  - PNEUMONIA [None]
